FAERS Safety Report 16471752 (Version 2)
Quarter: 2019Q3

REPORT INFORMATION
  Report Type: Report from Study
  Country: US (occurrence: US)
  Receive Date: 20190624
  Receipt Date: 20190709
  Transmission Date: 20191004
  Serious: Yes (Life-Threatening)
  Sender: FDA-Public Use
  Company Number: US-ALEXION PHARMACEUTICALS INC.-A201909618

PATIENT
  Age: 49 Year
  Sex: Female
  Weight: 81.87 kg

DRUGS (2)
  1. STRENSIQ [Suspect]
     Active Substance: ASFOTASE ALFA
     Dosage: 164 MG, TIW
     Route: 058
  2. STRENSIQ [Suspect]
     Active Substance: ASFOTASE ALFA
     Indication: HYPOPHOSPHATASIA
     Dosage: 164 MG, TIW
     Route: 058

REACTIONS (6)
  - Troponin increased [Recovering/Resolving]
  - Injection site coldness [Recovering/Resolving]
  - Malaise [Recovering/Resolving]
  - Injection site pain [Recovered/Resolved]
  - Hyperhidrosis [Recovering/Resolving]
  - Nausea [Recovering/Resolving]

NARRATIVE: CASE EVENT DATE: 20190619
